FAERS Safety Report 21264678 (Version 1)
Quarter: 2022Q3

REPORT INFORMATION
  Report Type: Spontaneous
  Country: US (occurrence: None)
  Receive Date: 20220826
  Receipt Date: 20220826
  Transmission Date: 20221026
  Serious: No
  Sender: FDA-Public Use
  Company Number: None

PATIENT
  Age: 66 Year
  Sex: Female

DRUGS (1)
  1. LORAZEPAM [Suspect]
     Active Substance: LORAZEPAM
     Dosage: FREQUENCY : AS DIRECTED;?
     Dates: start: 20220722, end: 20220724

REACTIONS (4)
  - Depressed level of consciousness [None]
  - Hypercapnia [None]
  - Respiratory failure [None]
  - Right ventricular dilatation [None]

NARRATIVE: CASE EVENT DATE: 20220722
